FAERS Safety Report 9355795 (Version 1)
Quarter: 2013Q2

REPORT INFORMATION
  Report Type: Spontaneous
  Country: FR (occurrence: FR)
  Receive Date: 20130619
  Receipt Date: 20130619
  Transmission Date: 20140414
  Serious: Yes (Other)
  Sender: FDA-Public Use
  Company Number: PHHY2013FR060750

PATIENT
  Sex: Male

DRUGS (2)
  1. CEFTRIAXONE [Suspect]
  2. FLUINDIONE [Suspect]

REACTIONS (1)
  - Factor V inhibition [Recovered/Resolved]
